FAERS Safety Report 9425298 (Version 1)
Quarter: 2013Q3

REPORT INFORMATION
  Report Type: Spontaneous
  Country: DE (occurrence: None)
  Receive Date: 20130725
  Receipt Date: 20130725
  Transmission Date: 20140515
  Serious: Yes (Hospitalization)
  Sender: FDA-Public Use
  Company Number: AUR-APL-2013-05949

PATIENT
  Age: 34 Year
  Sex: Female
  Weight: 75 kg

DRUGS (4)
  1. METFORMIN [Suspect]
     Indication: PRODUCT USED FOR UNKNOWN INDICATION
  2. SEROQUEL (QUETIAPINE FUMARATE) [Concomitant]
  3. RISPERDAL CONSTA (RISPERIDONE) [Concomitant]
  4. AKINETON RETARD (BIPERIDEN) [Concomitant]

REACTIONS (4)
  - Lactic acidosis [None]
  - Intentional overdose [None]
  - Suicidal ideation [None]
  - Toxicity to various agents [None]
